FAERS Safety Report 10584023 (Version 1)
Quarter: 2014Q4

REPORT INFORMATION
  Report Type: Spontaneous
  Country: US (occurrence: US)
  Receive Date: 20141114
  Receipt Date: 20141114
  Transmission Date: 20150529
  Serious: No
  Sender: FDA-Public Use
  Company Number: US-PFIZER INC-2014308274

PATIENT
  Age: 66 Year
  Sex: Female
  Weight: 63.5 kg

DRUGS (2)
  1. NORPACE [Suspect]
     Active Substance: DISOPYRAMIDE PHOSPHATE
     Indication: VENTRICULAR ARRHYTHMIA
     Dosage: 150 MG, 2X/DAY
     Dates: start: 2002
  2. NORPACE [Suspect]
     Active Substance: DISOPYRAMIDE PHOSPHATE
     Dosage: 100 MG, UNK
     Dates: end: 201410

REACTIONS (4)
  - Drug effect delayed [Unknown]
  - Drug hypersensitivity [Recovered/Resolved]
  - Malaise [Unknown]
  - Drug dispensing error [Unknown]
